FAERS Safety Report 9879246 (Version 1)
Quarter: 2014Q1

REPORT INFORMATION
  Report Type: Spontaneous
  Country: US (occurrence: US)
  Receive Date: 20140206
  Receipt Date: 20140206
  Transmission Date: 20141002
  Serious: No
  Sender: FDA-Public Use
  Company Number: US-ALLERGAN-1314408US

PATIENT
  Sex: Female

DRUGS (7)
  1. BOTOX [Suspect]
     Indication: MIGRAINE
     Dosage: 155 UNITS, SINGLE
     Route: 030
     Dates: start: 20130703, end: 20130703
  2. BOTOX [Suspect]
     Dosage: 155 UNITS, SINGLE
     Route: 030
     Dates: start: 20130703, end: 20130703
  3. OXYCODONE [Concomitant]
     Indication: MIGRAINE
     Dosage: UNK
  4. VALIUM [Concomitant]
     Indication: PRODUCT USED FOR UNKNOWN INDICATION
     Dosage: 5 MG, QHS
     Route: 048
  5. BUTRANS                            /00444001/ [Concomitant]
     Indication: PRODUCT USED FOR UNKNOWN INDICATION
     Dosage: 20 ?G, Q WEEK
     Route: 061
  6. SUMAVEL DOSEPRO [Concomitant]
     Indication: PRODUCT USED FOR UNKNOWN INDICATION
     Dosage: UNK
  7. PROMETHAZINE HCL [Concomitant]
     Indication: PRODUCT USED FOR UNKNOWN INDICATION
     Dosage: 12.5 MG, UNK

REACTIONS (1)
  - Therapeutic response decreased [Unknown]
